FAERS Safety Report 5371073-7 (Version None)
Quarter: 2007Q2

REPORT INFORMATION
  Report Type: 
  Country: None (occurrence: None)
  Receive Date: 20070622
  Receipt Date: 20070612
  Transmission Date: 20071010
  Serious: Yes (Death)
  Sender: FDA-Public Use
  Company Number: 2007EU001256

PATIENT
  Age: 55 Year
  Sex: Female

DRUGS (3)
  1. PROGRAF [Suspect]
     Indication: LIVER TRANSPLANT
  2. PREDNISONE TAB [Suspect]
     Indication: LIVER TRANSPLANT
  3. MYCOPHENOLATE MOFETIL [Suspect]
     Indication: LIVER TRANSPLANT

REACTIONS (14)
  - ABDOMINAL PAIN [None]
  - ASCITES [None]
  - BACTERAEMIA [None]
  - BACTEROIDES INFECTION [None]
  - DIARRHOEA [None]
  - DUODENAL ULCER [None]
  - ENCEPHALOPATHY [None]
  - ENTERITIS [None]
  - ENTEROBACTER INFECTION [None]
  - HUMAN HERPESVIRUS 6 INFECTION [None]
  - OESOPHAGEAL ULCER [None]
  - PSEUDOMONAS INFECTION [None]
  - RENAL FAILURE [None]
  - SEPTIC SHOCK [None]
